FAERS Safety Report 14320252 (Version 1)
Quarter: 2017Q4

REPORT INFORMATION
  Report Type: Spontaneous
  Country: CO (occurrence: CO)
  Receive Date: 20171222
  Receipt Date: 20171222
  Transmission Date: 20180321
  Serious: Yes (Other)
  Sender: FDA-Public Use
  Company Number: CO-LINDE-CO-LHC-2017268

PATIENT
  Age: 60 Year
  Sex: Female

DRUGS (2)
  1. OXYGEN (GENERIC) [Concomitant]
     Active Substance: OXYGEN
     Indication: SCLEROTHERAPY
  2. CARBON DIOXIDE (GENERIC) [Suspect]
     Active Substance: CARBON DIOXIDE
     Indication: SCLEROTHERAPY

REACTIONS (2)
  - Paradoxical embolism [Recovered/Resolved]
  - Transient ischaemic attack [Recovered/Resolved]
